FAERS Safety Report 16899468 (Version 1)
Quarter: 2019Q4

REPORT INFORMATION
  Report Type: Spontaneous
  Country: US (occurrence: US)
  Receive Date: 20190815
  Receipt Date: 20190815
  Transmission Date: 20200122
  Serious: Yes (Hospitalization)
  Sender: FDA-Public Use
  Company Number: None

PATIENT
  Age: 44 Year
  Sex: Male
  Weight: 77.56 kg

DRUGS (2)
  1. LUCEMYRA [Suspect]
     Active Substance: LOFEXIDINE
     Indication: STRESS
     Route: 048
     Dates: start: 20190716, end: 20190807
  2. PLACEBO [Suspect]
     Active Substance: UNSPECIFIED INGREDIENT
     Route: 048

REACTIONS (4)
  - Heat exhaustion [None]
  - Vomiting [None]
  - Dehydration [None]
  - Therapy cessation [None]

NARRATIVE: CASE EVENT DATE: 20190809
